FAERS Safety Report 6309168-3 (Version None)
Quarter: 2009Q3

REPORT INFORMATION
  Report Type: 
  Country: None (occurrence: None)
  Receive Date: 20090814
  Receipt Date: 20090519
  Transmission Date: 20100115
  Serious: No
  Sender: FDA-Public Use
  Company Number: A0787158A

PATIENT
  Sex: Female

DRUGS (2)
  1. COREG CR [Suspect]
     Route: 048
  2. CARVEDILOL [Suspect]
     Route: 048

REACTIONS (2)
  - DIZZINESS [None]
  - MALAISE [None]
